FAERS Safety Report 20422064 (Version 8)
Quarter: 2022Q1

REPORT INFORMATION
  Report Type: Report from Study
  Country: TW (occurrence: None)
  Receive Date: 20220203
  Receipt Date: 20220325
  Transmission Date: 20220423
  Serious: Yes (Hospitalization)
  Sender: FDA-Public Use
  Company Number: TW-ROCHE-3002527

PATIENT
  Age: 68 Year
  Sex: Male
  Weight: 44.8 kg

DRUGS (34)
  1. ATEZOLIZUMAB [Suspect]
     Active Substance: ATEZOLIZUMAB
     Indication: Hepatocellular carcinoma
     Dosage: DOSE LAST STUDY DRUG ADMIN PRIOR AE IS 1200 MG: 05/JAN/2022?START DATE OF MOST RECENT DOSE OF STUDY
     Route: 041
     Dates: start: 20210728
  2. BEVACIZUMAB [Suspect]
     Active Substance: BEVACIZUMAB
     Indication: Hepatocellular carcinoma
     Dosage: DOSE LAST STUDY DRUG ADMIN PRIOR AE IS 739.5 MG: 05/JAN/2022?START DATE OF MOST RECENT DOSE OF STUDY
     Route: 042
     Dates: start: 20210728
  3. TOCILIZUMAB [Suspect]
     Active Substance: TOCILIZUMAB
     Indication: Hepatocellular carcinoma
     Dosage: DOSE LAST STUDY DRUG ADMIN PRIOR AE IS 179.2 MG: 05/JAN/2022
     Route: 042
     Dates: start: 20210728
  4. ZOLPIDEM TARTRATE [Concomitant]
     Active Substance: ZOLPIDEM TARTRATE
     Indication: Insomnia
     Dosage: YES
     Route: 048
     Dates: start: 20220118
  5. ENTECAVIR [Concomitant]
     Active Substance: ENTECAVIR
     Indication: Chronic hepatitis B
     Dosage: YES
     Route: 048
     Dates: start: 20210722, end: 20210922
  6. FERRIC HYDROXIDE COLLOIDAL [Concomitant]
     Indication: Iron deficiency anaemia
     Dosage: YES
     Route: 048
     Dates: start: 20210722, end: 20220118
  7. OXYCODONE HYDROCHLORIDE [Concomitant]
     Active Substance: OXYCODONE HYDROCHLORIDE
     Indication: Abdominal pain
     Dosage: YES
     Route: 048
     Dates: start: 20210728
  8. LORAZEPAM [Concomitant]
     Active Substance: LORAZEPAM
     Indication: Insomnia
     Dosage: YES
     Route: 048
     Dates: start: 20210804
  9. SINPHARDERM [Concomitant]
     Indication: Palmar-plantar erythrodysaesthesia syndrome
     Route: 061
     Dates: start: 20210811
  10. MEGESTROL ACETATE [Concomitant]
     Active Substance: MEGESTROL ACETATE
     Indication: Decreased appetite
     Route: 048
     Dates: start: 20210811, end: 20220104
  11. MEGESTROL ACETATE [Concomitant]
     Active Substance: MEGESTROL ACETATE
     Route: 048
     Dates: start: 20220105, end: 20220111
  12. MEGESTROL ACETATE [Concomitant]
     Active Substance: MEGESTROL ACETATE
     Route: 048
     Dates: start: 20220114, end: 20220128
  13. TRIAMCINOLONE ACETONIDE [Concomitant]
     Active Substance: TRIAMCINOLONE ACETONIDE
     Indication: Stomatitis
     Route: 061
     Dates: start: 20210811
  14. ACETAMINOPHEN [Concomitant]
     Active Substance: ACETAMINOPHEN
     Indication: Gingivitis
     Route: 048
     Dates: start: 20210908
  15. TAITA NO.5 [Concomitant]
     Indication: Dysuria
     Route: 042
     Dates: start: 20211101
  16. TAMSULOSIN HYDROCHLORIDE [Concomitant]
     Active Substance: TAMSULOSIN HYDROCHLORIDE
     Indication: Dysuria
     Route: 048
     Dates: start: 20211101, end: 20211214
  17. TAMSULOSIN HYDROCHLORIDE [Concomitant]
     Active Substance: TAMSULOSIN HYDROCHLORIDE
     Dates: start: 20211215, end: 20220118
  18. ZINC OXIDE [Concomitant]
     Active Substance: ZINC OXIDE
     Route: 061
     Dates: start: 20211101
  19. SENNAPUR [Concomitant]
     Indication: Constipation
     Route: 048
     Dates: start: 20211103
  20. OXYBUTYNIN CHLORIDE [Concomitant]
     Active Substance: OXYBUTYNIN CHLORIDE
     Indication: Dysuria
     Route: 048
     Dates: start: 20211206, end: 20220102
  21. DIPHENHYDRAMINE HYDROCHLORIDE [Concomitant]
     Active Substance: DIPHENHYDRAMINE HYDROCHLORIDE
     Route: 042
     Dates: start: 20211216, end: 20211216
  22. BENAZON [Concomitant]
     Indication: Pruritus
     Route: 061
     Dates: start: 20211215
  23. PACKED RBC [Concomitant]
     Indication: Anaemia
     Dosage: 2 U
     Route: 042
     Dates: start: 20211216, end: 20211216
  24. ERTAPENEM [Concomitant]
     Active Substance: ERTAPENEM
     Dates: start: 20220123
  25. FLUCONAZOLE [Concomitant]
     Active Substance: FLUCONAZOLE
     Dates: start: 20220129
  26. PIPERACILLIN SODIUM\TAZOBACTAM SODIUM [Concomitant]
     Active Substance: PIPERACILLIN SODIUM\TAZOBACTAM SODIUM
     Dates: start: 20220203
  27. ZINC OXIDE [Concomitant]
     Active Substance: ZINC OXIDE
     Route: 061
     Dates: start: 20211101
  28. MONTMORILLONITE [Concomitant]
     Active Substance: MONTMORILLONITE
     Indication: Diarrhoea
     Route: 048
     Dates: start: 20220105, end: 20220117
  29. TRANEXAMIC ACID [Concomitant]
     Active Substance: TRANEXAMIC ACID
     Indication: Epistaxis
     Dates: start: 20220105, end: 20220112
  30. BENAZON [Concomitant]
     Indication: Pruritus
     Route: 061
     Dates: start: 20211215, end: 20220104
  31. CHLORPHENIRAMINE MALEATE [Concomitant]
     Active Substance: CHLORPHENIRAMINE MALEATE
     Indication: Pruritus
     Route: 061
     Dates: start: 20211103, end: 20220128
  32. OXBU [Concomitant]
     Indication: Prophylaxis
     Route: 048
     Dates: start: 20211206, end: 20220102
  33. LEUKOCYTE POOR RED CELLS [Concomitant]
     Indication: Anaemia
     Route: 042
     Dates: start: 20211216, end: 20211216
  34. TRANSAMIN [Concomitant]
     Active Substance: TRANEXAMIC ACID
     Dosage: 250 MG/CAP
     Route: 048
     Dates: start: 20220116, end: 20220117

REACTIONS (2)
  - Salmonella bacteraemia [Recovered/Resolved]
  - Pyrexia [Recovered/Resolved]

NARRATIVE: CASE EVENT DATE: 20220112
